FAERS Safety Report 5010734-6 (Version None)
Quarter: 2006Q2

REPORT INFORMATION
  Report Type: 
  Country: None (occurrence: None)
  Receive Date: 20060525
  Receipt Date: 20060418
  Transmission Date: 20061013
  Serious: Yes (Other)
  Sender: FDA-Public Use
  Company Number: PHEH2006US05122

PATIENT
  Age: 35 Year
  Sex: Male

DRUGS (5)
  1. RITALIN-SR [Suspect]
     Indication: NARCOLEPSY
     Dosage: 20MG PO QAM
     Route: 048
     Dates: start: 20000101
  2. RITALIN [Suspect]
     Indication: NARCOLEPSY
     Dosage: 10 MG, BID
     Route: 048
     Dates: start: 20000101, end: 20060301
  3. RITALIN [Suspect]
     Dosage: UNK, UNK
     Route: 048
     Dates: start: 20060301
  4. PROVIGIL [Suspect]
     Indication: NARCOLEPSY
     Dosage: 200 MG, TID
     Route: 048
     Dates: start: 20000301, end: 20060301
  5. PROVIGIL [Suspect]
     Dosage: 200 MG, BID
     Route: 048
     Dates: start: 20060301

REACTIONS (4)
  - DELUSION [None]
  - DRUG INTERACTION [None]
  - HALLUCINATIONS, MIXED [None]
  - SCHIZOPHRENIA [None]
